FAERS Safety Report 5804538-1 (Version None)
Quarter: 2008Q3

REPORT INFORMATION
  Report Type: 
  Country: None (occurrence: None)
  Receive Date: 20080707
  Receipt Date: 20080707
  Transmission Date: 20090109
  Serious: No
  Sender: FDA-Public Use
  Company Number: None

PATIENT
  Age: 50 Year
  Sex: Female
  Weight: 72.5755 kg

DRUGS (5)
  1. LAMICTAL [Suspect]
     Indication: BIPOLAR II DISORDER
     Dosage: 50 1 PO, 100 1 PO
     Route: 048
     Dates: start: 20080415, end: 20080617
  2. LAMICTAL [Suspect]
     Indication: BIPOLAR II DISORDER
     Dosage: 50 1 PO, 100 1 PO
     Route: 048
     Dates: start: 20080618, end: 20080624
  3. INDERAL [Concomitant]
  4. SYNTHROID [Concomitant]
  5. SEROQUEL [Concomitant]

REACTIONS (3)
  - HEADACHE [None]
  - MIGRAINE [None]
  - TENSION [None]
